FAERS Safety Report 8443079-2 (Version None)
Quarter: 2012Q2

REPORT INFORMATION
  Report Type: 
  Country: None (occurrence: None)
  Receive Date: 20120615
  Receipt Date: 20120320
  Transmission Date: 20120825
  Serious: Yes (Other)
  Sender: FDA-Public Use
  Company Number: IT-BAXTER-2012BAX000290

PATIENT
  Sex: Female

DRUGS (4)
  1. CYCLOPHOSPHAMIDE [Suspect]
     Route: 042
     Dates: start: 20110625, end: 20110903
  2. FLUOROURACIL [Suspect]
     Route: 042
     Dates: start: 20110625, end: 20110903
  3. LEVOTHYROXINE SODIUM [Concomitant]
     Route: 065
  4. EPIRUBICIN [Suspect]
     Route: 042
     Dates: start: 20110625, end: 20110903

REACTIONS (3)
  - NEUTROPENIA [None]
  - ALOPECIA [None]
  - CONSTIPATION [None]
